FAERS Safety Report 9848353 (Version 4)
Quarter: 2014Q2

REPORT INFORMATION
  Report Type: Spontaneous
  Country: TW (occurrence: TW)
  Receive Date: 20140128
  Receipt Date: 20140513
  Transmission Date: 20141212
  Serious: Yes (Hospitalization)
  Sender: FDA-Public Use
  Company Number: PHHY2014TW008567

PATIENT
  Age: 44 Year
  Sex: Female
  Weight: 65.1 kg

DRUGS (9)
  1. AFINITOR [Suspect]
     Indication: BREAST CANCER
     Dosage: 10 MG, QD
     Route: 048
     Dates: start: 20130821
  2. AROMASIN [Concomitant]
     Indication: BREAST CANCER METASTATIC
     Dosage: 25 MG, QD
     Route: 048
  3. ZOMETA [Concomitant]
  4. ZANTAC [Concomitant]
  5. SILYMARIN [Concomitant]
  6. BLOPRESS [Concomitant]
     Dosage: 1 UNK, UNK
  7. ASPIRIN [Concomitant]
     Dosage: 1 DF, QD
  8. CARVEDIOL [Concomitant]
     Dosage: 1 DF, QD
  9. SITAGLIPTIN [Concomitant]
     Dosage: 1 DF, QD

REACTIONS (7)
  - Hepatitis [Recovered/Resolved]
  - Aspartate aminotransferase increased [Unknown]
  - Alanine aminotransferase increased [Unknown]
  - Jaundice [Recovering/Resolving]
  - Blood bilirubin increased [Recovering/Resolving]
  - Amylase increased [Unknown]
  - Lipase increased [Unknown]
